FAERS Safety Report 10189050 (Version 1)
Quarter: 2014Q2

REPORT INFORMATION
  Report Type: Spontaneous
  Country: US (occurrence: US)
  Receive Date: 20140522
  Receipt Date: 20140522
  Transmission Date: 20141212
  Serious: No
  Sender: FDA-Public Use
  Company Number: US-BAYER-2014-075715

PATIENT
  Sex: Male

DRUGS (1)
  1. ALEVE CAPLET [Suspect]
     Indication: ARTHRALGIA
     Dosage: 1 DF, EVERY 6 HOURS
     Route: 048
     Dates: start: 20140516

REACTIONS (2)
  - Drug ineffective [None]
  - Extra dose administered [None]
